FAERS Safety Report 8243524-1 (Version None)
Quarter: 2012Q1

REPORT INFORMATION
  Report Type: 
  Country: None (occurrence: None)
  Receive Date: 20120329
  Receipt Date: 20120320
  Transmission Date: 20120608
  Serious: Yes (Hospitalization)
  Sender: FDA-Public Use
  Company Number: PHHY2012FR025451

PATIENT
  Age: 70 Year
  Sex: Male

DRUGS (4)
  1. CALCIUM CHANNEL BLOCKERS [Concomitant]
  2. DIURETICS [Concomitant]
  3. ANGIOTENSIN II ANTAGONISTS [Concomitant]
  4. RASILEZ [Suspect]
     Indication: HYPERTENSION

REACTIONS (6)
  - NAUSEA [None]
  - RENAL FAILURE ACUTE [None]
  - VOMITING [None]
  - ORTHOSTATIC HYPOTENSION [None]
  - HAEMOLYTIC URAEMIC SYNDROME [None]
  - HYPERKALAEMIA [None]
